FAERS Safety Report 9476783 (Version 2)
Quarter: 2013Q3

REPORT INFORMATION
  Report Type: Report from Study
  Country: CA (occurrence: CA)
  Receive Date: 20130826
  Receipt Date: 20130917
  Transmission Date: 20140515
  Serious: Yes (Hospitalization)
  Sender: FDA-Public Use
  Company Number: PHHY2013CA092179

PATIENT
  Age: 73 Year
  Sex: Female

DRUGS (9)
  1. ACLASTA [Suspect]
     Indication: OSTEOPOROSIS
     Dosage: UNK UKN, UNK
     Route: 042
     Dates: start: 20120905
  2. ACLASTA [Suspect]
     Dosage: UNK UKN, UNK
     Route: 042
     Dates: start: 20130904
  3. ANGIOTENSIN II ANTAGONISTS [Concomitant]
     Dosage: 16 MG, QD
  4. LEVOTHYROXINE [Concomitant]
     Dosage: 50 UG, QD
  5. ZOPICLONE [Concomitant]
     Dosage: 7.5 MG, UNK
  6. CITALOPRAM [Concomitant]
     Dosage: 40 MG, QD
  7. ATORVASTATIN [Concomitant]
     Dosage: 40 MG, QD
  8. PANTOLOC ^BYK MADAUS^ [Concomitant]
     Dosage: 40 MG, QD
  9. CELEXA [Concomitant]
     Indication: DEPRESSION

REACTIONS (21)
  - Fall [Recovered/Resolved]
  - Craniocerebral injury [Recovered/Resolved]
  - Subdural haematoma [Recovered/Resolved]
  - Traumatic intracranial haemorrhage [Recovered/Resolved]
  - Hyponatraemia [Recovered/Resolved]
  - Cognitive disorder [Recovered/Resolved]
  - Aphasia [Recovered/Resolved]
  - Confusional state [Recovered/Resolved]
  - Loss of consciousness [Recovered/Resolved]
  - Subarachnoid haemorrhage [Recovered/Resolved]
  - Disorientation [Recovered/Resolved]
  - Vasogenic cerebral oedema [Recovered/Resolved]
  - Disturbance in attention [Recovered/Resolved]
  - Memory impairment [Recovered/Resolved]
  - Slow response to stimuli [Recovered/Resolved]
  - Impulsive behaviour [Recovered/Resolved]
  - Syncope [Recovered/Resolved]
  - Hypertension [Recovered/Resolved]
  - Headache [Recovered/Resolved]
  - Vomiting [Recovered/Resolved]
  - Nausea [Recovered/Resolved]
